FAERS Safety Report 5803924 (Version 2)
Quarter: 2014Q4

REPORT INFORMATION
  Report Type: Spontaneous
  Country: US (occurrence: None)
  Receive Date: 20050215
  Receipt Date: 20141003
  Transmission Date: 20150529
  Serious: Yes (Other)
  Sender: FDA-Public Use
  Company Number: 382876

PATIENT
  Age: 56 Year
  Sex: Female
  Weight: 85.87 kg

DRUGS (11)
  1. TRAZODONE [Concomitant]
     Active Substance: TRAZODONE HYDROCHLORIDE
  2. SEROQUEL [Concomitant]
     Active Substance: QUETIAPINE FUMARATE
  3. INFERGEN [Suspect]
     Active Substance: INTERFERON ALFACON-1
     Indication: PRODUCT USED FOR UNKNOWN INDICATION
     Route: 058
  4. RIBASPHERE [Suspect]
     Active Substance: RIBAVIRIN
     Indication: HEPATITIS C
     Dosage: 2 TAKEN IN THE MORNING AND 3 TAKEN IN THE EVENING. (2 IN 1 D), ORAL
     Route: 048
     Dates: start: 20040730
  5. LAMICTAL [Concomitant]
     Active Substance: LAMOTRIGINE
  6. PEGASYS [Suspect]
     Active Substance: PEGINTERFERON ALFA-2A
     Indication: HEPATITIS C
     Dosage: 180 MCG/0.5ML. (180 PG, 1 IN1 WK), SUBCUTANEOUS?
     Route: 058
     Dates: start: 20040730
  7. BYSTOLIC [Concomitant]
     Active Substance: NEBIVOLOL HYDROCHLORIDE
  8. ZOLOFT [Concomitant]
     Active Substance: SERTRALINE HYDROCHLORIDE
  9. LORAZEPAM. [Concomitant]
     Active Substance: LORAZEPAM
  10. BUSPAR (BUSPIRONE HYDROCHLORIDE) [Concomitant]
  11. TELAPREVIR (TELAPREVIR) [Suspect]
     Active Substance: TELAPREVIR
     Indication: HEPATITIS C
     Dosage: STOPPED

REACTIONS (27)
  - Platelet count decreased [None]
  - Weight increased [None]
  - Pain [None]
  - Abdominal distension [None]
  - Depressed mood [None]
  - Weight decreased [None]
  - Visual acuity reduced [None]
  - Breast cyst [None]
  - Anxiety [None]
  - Hypertension [None]
  - White blood cell count decreased [None]
  - No therapeutic response [None]
  - Rectal haemorrhage [None]
  - Nausea [None]
  - Rash [None]
  - Diarrhoea [None]
  - Anaemia [None]
  - Red blood cell count decreased [None]
  - Mood altered [None]
  - Influenza like illness [None]
  - Back pain [None]
  - Fatigue [None]
  - Arthralgia [None]
  - Injection site bruising [None]
  - Decreased appetite [None]
  - Vomiting [None]
  - Social avoidant behaviour [None]

NARRATIVE: CASE EVENT DATE: 20041004
